FAERS Safety Report 18648843 (Version 1)
Quarter: 2020Q4

REPORT INFORMATION
  Report Type: Spontaneous
  Country: JP (occurrence: JP)
  Receive Date: 20201222
  Receipt Date: 20201222
  Transmission Date: 20210114
  Serious: Yes (Other)
  Sender: FDA-Public Use
  Company Number: JP-PFIZER INC-2020497049

PATIENT
  Age: 8 Decade
  Sex: Male

DRUGS (1)
  1. LORBRENA [Suspect]
     Active Substance: LORLATINIB
     Indication: LUNG NEOPLASM MALIGNANT
     Dosage: 100 MG, DAILY
     Route: 048
     Dates: start: 202007

REACTIONS (6)
  - Cerebral ischaemia [Unknown]
  - Blood pressure decreased [Unknown]
  - Dizziness [Unknown]
  - Syncope [Unknown]
  - Vasculitis [Unknown]
  - Rash [Unknown]

NARRATIVE: CASE EVENT DATE: 2020
